FAERS Safety Report 24938730 (Version 1)
Quarter: 2025Q1

REPORT INFORMATION
  Report Type: Spontaneous
  Country: US (occurrence: US)
  Receive Date: 20250206
  Receipt Date: 20250206
  Transmission Date: 20250409
  Serious: No
  Sender: SANOFI AVENTIS
  Company Number: US-SA-2025SA035980

PATIENT
  Age: 71 Year
  Sex: Male
  Weight: 90.71 kg

DRUGS (7)
  1. DUPIXENT [Suspect]
     Active Substance: DUPILUMAB
     Indication: Hookworm infection
     Dosage: 300 MG, QOW
     Dates: start: 202501
  2. DUPIXENT [Suspect]
     Active Substance: DUPILUMAB
     Indication: Eczema
  3. DUPIXENT [Suspect]
     Active Substance: DUPILUMAB
     Indication: Illness
  4. OMEPRAZOLE [Concomitant]
     Active Substance: OMEPRAZOLE
  5. CLONAZEPAM [Concomitant]
     Active Substance: CLONAZEPAM
  6. ENTRESTO [Concomitant]
     Active Substance: SACUBITRIL\VALSARTAN
  7. REPATHA [Concomitant]
     Active Substance: EVOLOCUMAB

REACTIONS (1)
  - Product use in unapproved indication [Unknown]

NARRATIVE: CASE EVENT DATE: 20250101
